FAERS Safety Report 6170006-3 (Version None)
Quarter: 2009Q2

REPORT INFORMATION
  Report Type: 
  Country: None (occurrence: None)
  Receive Date: 20090428
  Receipt Date: 20090416
  Transmission Date: 20091009
  Serious: No
  Sender: FDA-Public Use
  Company Number: US-ELI_LILLY_AND_COMPANY-US200904004168

PATIENT
  Sex: Female

DRUGS (6)
  1. CYMBALTA [Suspect]
     Dosage: 120 MG, UNK
     Route: 048
     Dates: end: 20090101
  2. CYMBALTA [Suspect]
     Dosage: 60 MG, UNK
     Route: 048
     Dates: start: 20090101
  3. LYRICA [Concomitant]
  4. OXYCODONE [Concomitant]
  5. NORCO [Concomitant]
  6. FLEXERIL [Concomitant]

REACTIONS (1)
  - HEPATIC ENZYME INCREASED [None]
